FAERS Safety Report 23630225 (Version 1)
Quarter: 2024Q1

REPORT INFORMATION
  Report Type: Spontaneous
  Country: JP (occurrence: JP)
  Receive Date: 20240314
  Receipt Date: 20240314
  Transmission Date: 20240410
  Serious: Yes (Other)
  Sender: FDA-Public Use
  Company Number: JP-BAYER-2024A036455

PATIENT
  Age: 97 Year
  Sex: Male
  Weight: 63.8 kg

DRUGS (2)
  1. XARELTO [Suspect]
     Active Substance: RIVAROXABAN
     Indication: Product used for unknown indication
     Dosage: DAILY DOSE 30 MG
     Route: 048
     Dates: start: 20211202, end: 20211223
  2. XARELTO [Suspect]
     Active Substance: RIVAROXABAN
     Dosage: DAILY DOSE 15 MG
     Route: 048
     Dates: start: 20211224

REACTIONS (3)
  - Deep vein thrombosis [Not Recovered/Not Resolved]
  - Peripheral swelling [Unknown]
  - Fibrin D dimer increased [Unknown]

NARRATIVE: CASE EVENT DATE: 20240202
